FAERS Safety Report 4797326-9 (Version None)
Quarter: 2005Q3

REPORT INFORMATION
  Report Type: 
  Country: None (occurrence: None)
  Receive Date: 20050930
  Receipt Date: 20050712
  Transmission Date: 20060218
  Serious: Yes (Hospitalization)
  Sender: FDA-Public Use
  Company Number: USA050597161

PATIENT
  Age: 77 Year
  Sex: Male
  Weight: 68 kg

DRUGS (6)
  1. ALIMTA [Suspect]
     Indication: METASTASES TO LUNG
     Dosage: 500 MG
     Dates: start: 20050412
  2. ALIMTA [Suspect]
     Indication: TRACHEAL CANCER
     Dosage: 500 MG
     Dates: start: 20050412
  3. VITAMIN B-12 [Concomitant]
  4. FOLIC ACID [Concomitant]
  5. DECADRON [Concomitant]
  6. TARCEVA [Concomitant]

REACTIONS (2)
  - OEDEMA [None]
  - RASH [None]
